FAERS Safety Report 11174277 (Version 2)
Quarter: 2015Q3

REPORT INFORMATION
  Report Type: Spontaneous
  Country: US (occurrence: US)
  Receive Date: 20150609
  Receipt Date: 20150821
  Transmission Date: 20151125
  Serious: Yes (Death, Hospitalization, Other)
  Sender: FDA-Public Use
  Company Number: US-BIOGENIDEC-2015BI041855

PATIENT
  Age: 58 Year
  Sex: Female

DRUGS (2)
  1. TECFIDERA [Suspect]
     Active Substance: DIMETHYL FUMARATE
     Indication: MULTIPLE SCLEROSIS
     Route: 048
     Dates: start: 20140423
  2. TECFIDERA [Suspect]
     Active Substance: DIMETHYL FUMARATE
     Indication: MULTIPLE SCLEROSIS
     Route: 048
     Dates: start: 20140409

REACTIONS (10)
  - Urinary tract infection [Unknown]
  - Seizure [Unknown]
  - Agitation [Unknown]
  - Sepsis [Unknown]
  - Depressed level of consciousness [Unknown]
  - Hypertension [Unknown]
  - Death [Fatal]
  - Confusional state [Unknown]
  - Speech disorder [Unknown]
  - Encephalopathy [Unknown]

NARRATIVE: CASE EVENT DATE: 20150315
